FAERS Safety Report 8017120-5 (Version None)
Quarter: 2012Q1

REPORT INFORMATION
  Report Type: 
  Country: None (occurrence: None)
  Receive Date: 20120102
  Receipt Date: 20111221
  Transmission Date: 20120608
  Serious: Yes (Other)
  Sender: FDA-Public Use
  Company Number: US-ROCHE-795686

PATIENT
  Sex: Female
  Weight: 71.732 kg

DRUGS (2)
  1. ACCUTANE [Suspect]
     Indication: PITYRIASIS
     Route: 048
     Dates: start: 19990101, end: 20010101
  2. ORTHO-NOVUM [Concomitant]
     Indication: CONTRACEPTION

REACTIONS (8)
  - CROHN'S DISEASE [None]
  - COLITIS ULCERATIVE [None]
  - INFLAMMATORY BOWEL DISEASE [None]
  - ABDOMINAL PAIN [None]
  - ANAL FISSURE [None]
  - HAEMORRHOIDS [None]
  - RECTAL HAEMORRHAGE [None]
  - HYPERKERATOSIS [None]
